FAERS Safety Report 5142994-5 (Version None)
Quarter: 2006Q4

REPORT INFORMATION
  Report Type: 
  Country: None (occurrence: None)
  Receive Date: 20061103
  Receipt Date: 20061026
  Transmission Date: 20070319
  Serious: Yes (Other)
  Sender: FDA-Public Use
  Company Number: 2006AP05169

PATIENT
  Age: 86 Year

DRUGS (1)
  1. DIPRIVAN [Suspect]
     Indication: INDUCTION AND MAINTENANCE OF ANAESTHESIA
     Route: 042

REACTIONS (2)
  - DRUG ERUPTION [None]
  - TOXIC EPIDERMAL NECROLYSIS [None]
